FAERS Safety Report 9820405 (Version 1)
Quarter: 2014Q1

REPORT INFORMATION
  Report Type: Spontaneous
  Country: US (occurrence: None)
  Receive Date: 20140114
  Receipt Date: 20140114
  Transmission Date: 20141002
  Serious: Yes (Other)
  Sender: FDA-Public Use
  Company Number: None

PATIENT
  Age: 83 Year
  Sex: Female
  Weight: 56.7 kg

DRUGS (7)
  1. AMLODIPINE [Suspect]
     Indication: HYPERTENSION
     Dates: start: 201104, end: 20131216
  2. FOSAMAX [Suspect]
  3. PLAQUENIL [Suspect]
  4. TERAZOSIN [Suspect]
  5. LOSARTAN [Suspect]
  6. SIMVASTATIN [Suspect]
  7. TICLOPIDINE [Concomitant]

REACTIONS (3)
  - Local swelling [None]
  - Joint swelling [None]
  - Drug hypersensitivity [None]
